FAERS Safety Report 9778652 (Version 2)
Quarter: 2014Q1

REPORT INFORMATION
  Report Type: Spontaneous
  Country: FI (occurrence: FI)
  Receive Date: 20131223
  Receipt Date: 20140219
  Transmission Date: 20141002
  Serious: Yes (Hospitalization, Other)
  Sender: FDA-Public Use
  Company Number: PHHY2013FI146396

PATIENT
  Age: 50 Year
  Sex: Female

DRUGS (12)
  1. LEPONEX [Suspect]
     Indication: SCHIZOAFFECTIVE DISORDER
     Dosage: 300 MG, QD
     Route: 048
     Dates: start: 2002, end: 201310
  2. LEPONEX [Suspect]
     Indication: OFF LABEL USE
     Dosage: UNK
     Dates: start: 2013, end: 2013
  3. LEPONEX [Suspect]
     Dosage: 100 MG + 200 MG DAILY
     Dates: start: 20131104, end: 20131211
  4. LAMICTAL [Suspect]
     Dosage: UNK
     Dates: start: 201310, end: 201310
  5. LAMICTAL [Suspect]
     Dosage: UNK
     Dates: start: 2013, end: 2013
  6. QUETIAPINE [Suspect]
     Dosage: UNK
     Dates: start: 201310, end: 201310
  7. TEMESTA [Concomitant]
     Dosage: UNK
     Dates: start: 20131204
  8. TENOX (TEMAZEPAM) [Concomitant]
     Dosage: AS NEEDED
  9. CALCICHEW-D3 FORTE [Concomitant]
     Dosage: UNK
  10. PRIMASPAN [Concomitant]
     Dosage: UNK
  11. BURANA [Concomitant]
     Dosage: UNK
  12. NASONEX [Concomitant]
     Dosage: UNK

REACTIONS (19)
  - Pneumonia [Recovered/Resolved]
  - Pyrexia [Unknown]
  - Lymphangiosis carcinomatosa [Recovering/Resolving]
  - Dysplasia [Recovering/Resolving]
  - Respiratory tract inflammation [Recovered/Resolved]
  - Lymphadenopathy [Recovered/Resolved]
  - Alanine aminotransferase increased [Not Recovered/Not Resolved]
  - Gamma-glutamyltransferase increased [Not Recovered/Not Resolved]
  - Lung infection [Not Recovered/Not Resolved]
  - Electrocardiogram QT prolonged [Not Recovered/Not Resolved]
  - Type 2 diabetes mellitus [Not Recovered/Not Resolved]
  - Gastritis [Not Recovered/Not Resolved]
  - Asthma [Not Recovered/Not Resolved]
  - Blood immunoglobulin G decreased [Unknown]
  - Off label use [Unknown]
  - Aspartate aminotransferase increased [Not Recovered/Not Resolved]
  - Blood alkaline phosphatase increased [Not Recovered/Not Resolved]
  - Hypercholesterolaemia [Not Recovered/Not Resolved]
  - Bronchiolitis [Unknown]
